FAERS Safety Report 7692096-9 (Version None)
Quarter: 2011Q3

REPORT INFORMATION
  Report Type: 
  Country: None (occurrence: None)
  Receive Date: 20110818
  Receipt Date: 20110809
  Transmission Date: 20111222
  Serious: Yes (Hospitalization, Other)
  Sender: FDA-Public Use
  Company Number: US-ASTRAZENECA-2011SE42322

PATIENT
  Age: 46 Year
  Sex: Female

DRUGS (3)
  1. INSULIN [Concomitant]
     Indication: DIABETES MELLITUS
  2. TOPROL-XL [Suspect]
     Route: 048
  3. CIPROFLOXACIN [Concomitant]

REACTIONS (7)
  - SOMNOLENCE [None]
  - DRUG DOSE OMISSION [None]
  - VASCULAR GRAFT [None]
  - PALPITATIONS [None]
  - DRUG INEFFECTIVE [None]
  - MUSCLE STRAIN [None]
  - CATHETERISATION CARDIAC [None]
